FAERS Safety Report 6153577-2 (Version None)
Quarter: 2009Q2

REPORT INFORMATION
  Report Type: 
  Country: None (occurrence: None)
  Receive Date: 20090413
  Receipt Date: 20090410
  Transmission Date: 20091009
  Serious: Yes (Death, Other)
  Sender: FDA-Public Use
  Company Number: US-ASTRAZENECA-2009UW09167

PATIENT
  Sex: Male

DRUGS (3)
  1. SEROQUEL [Suspect]
     Route: 048
  2. DEPAKOTE [Suspect]
  3. ZYPREXA [Suspect]

REACTIONS (6)
  - DEATH [None]
  - DECUBITUS ULCER [None]
  - DEHYDRATION [None]
  - PNEUMONIA [None]
  - SEPSIS [None]
  - WEIGHT DECREASED [None]
